FAERS Safety Report 6166756-5 (Version None)
Quarter: 2009Q2

REPORT INFORMATION
  Report Type: 
  Country: None (occurrence: None)
  Receive Date: 20090424
  Receipt Date: 20090303
  Transmission Date: 20091009
  Serious: Yes (Life-Threatening, Hospitalization, Other)
  Sender: FDA-Public Use
  Company Number: JP-PFIZER INC-2009174816

PATIENT

DRUGS (3)
  1. MIGLITOL [Suspect]
     Indication: DIABETES MELLITUS
     Dosage: 100 MG, UNK
     Route: 048
     Dates: start: 20081108, end: 20090121
  2. NATEGLINIDE [Concomitant]
     Indication: TYPE 2 DIABETES MELLITUS
     Dosage: 270 MG, UNK
     Route: 048
     Dates: start: 20070802, end: 20090121
  3. HUMULIN R [Concomitant]
     Indication: DIABETES MELLITUS
     Dosage: UNK
     Route: 065
     Dates: start: 20090101, end: 20090201

REACTIONS (3)
  - ABDOMINAL PAIN [None]
  - BACK PAIN [None]
  - ILEUS [None]
